FAERS Safety Report 7515694-1 (Version None)
Quarter: 2011Q2

REPORT INFORMATION
  Report Type: 
  Country: None (occurrence: None)
  Receive Date: 20110601
  Receipt Date: 20110517
  Transmission Date: 20111010
  Serious: Yes (Hospitalization, Other)
  Sender: FDA-Public Use
  Company Number: US-CELGENEUS-163-20785-11030592

PATIENT
  Sex: Male
  Weight: 63.469 kg

DRUGS (3)
  1. DECADRON [Concomitant]
     Indication: MULTIPLE MYELOMA
     Route: 065
  2. THALOMID [Suspect]
     Indication: MULTIPLE MYELOMA
     Dosage: 100 MILLIGRAM
     Route: 048
     Dates: start: 20100817, end: 20110201
  3. VELCADE [Concomitant]
     Route: 065
     Dates: start: 20100727, end: 20110218

REACTIONS (1)
  - INTERSTITIAL LUNG DISEASE [None]
